FAERS Safety Report 4616328-6 (Version None)
Quarter: 2005Q1

REPORT INFORMATION
  Report Type: 
  Country: None (occurrence: None)
  Receive Date: 20050321
  Receipt Date: 20050309
  Transmission Date: 20050727
  Serious: Yes (Hospitalization)
  Sender: FDA-Public Use
  Company Number: US-2005-003483

PATIENT
  Age: 47 Year
  Sex: Female
  Weight: 47.6 kg

DRUGS (4)
  1. BETASERON [Suspect]
     Indication: MULTIPLE SCLEROSIS
     Dosage: 9.6 MIU, EVERY 2D, SUBCUTANEOUS
     Route: 058
     Dates: start: 20020901, end: 20040801
  2. VALIUM [Concomitant]
  3. TYLENOL W/CODEINE NO. 4 (CODEINE PHOSPHATE) [Concomitant]
  4. ASCRIPTIN A/D (MAGNESIUM HYDROXIDE, ALUMINIUM GEL, ACETYLSALICYLIC ACI [Concomitant]

REACTIONS (3)
  - HYPOTHYROIDISM [None]
  - LOSS OF CONSCIOUSNESS [None]
  - NON-CARDIAC CHEST PAIN [None]
